FAERS Safety Report 9858282 (Version 2)
Quarter: 2014Q1

REPORT INFORMATION
  Report Type: Spontaneous
  Country: US (occurrence: US)
  Receive Date: 20140131
  Receipt Date: 20140214
  Transmission Date: 20141002
  Serious: No
  Sender: FDA-Public Use
  Company Number: US-PFIZER INC-2014026602

PATIENT
  Age: 44 Year
  Sex: Female
  Weight: 63.5 kg

DRUGS (2)
  1. ADVIL [Suspect]
     Indication: MUSCULOSKELETAL PAIN
     Dosage: 200 MG, TWO TIMES A DAY
     Route: 048
     Dates: start: 201401, end: 201401
  2. ADVIL [Suspect]
     Dosage: 200 MG, ONCE A DAY
     Route: 048
     Dates: start: 201401, end: 201401

REACTIONS (5)
  - Dyspepsia [Unknown]
  - Eructation [Unknown]
  - Malaise [Unknown]
  - Product coating issue [Unknown]
  - Gastrooesophageal reflux disease [Unknown]
